FAERS Safety Report 4487697-5 (Version None)
Quarter: 2004Q4

REPORT INFORMATION
  Report Type: 
  Country: None (occurrence: None)
  Receive Date: 20041025
  Receipt Date: 20041019
  Transmission Date: 20050328
  Serious: Yes (Hospitalization)
  Sender: FDA-Public Use
  Company Number: TAP2004Q01325

PATIENT
  Age: 37 Year
  Sex: Female

DRUGS (5)
  1. LUPRON DEPOT-3 [Suspect]
     Indication: PREMENSTRUAL SYNDROME
     Dosage: 3.75 MG UNKNOWN
     Route: 065
     Dates: end: 20041011
  2. LITHIUM CARBONATE [Concomitant]
  3. SEROQUEL [Concomitant]
  4. PROZAC [Concomitant]
  5. LAMICTAL [Concomitant]

REACTIONS (6)
  - CHEST PAIN [None]
  - ELECTROCARDIOGRAM ABNORMAL [None]
  - HYPOAESTHESIA [None]
  - NAUSEA [None]
  - PARAESTHESIA [None]
  - VOMITING PROJECTILE [None]
